FAERS Safety Report 22651951 (Version 20)
Quarter: 2024Q2

REPORT INFORMATION
  Report Type: Spontaneous
  Country: IT (occurrence: IT)
  Receive Date: 20230628
  Receipt Date: 20240514
  Transmission Date: 20240715
  Serious: Yes (Death, Hospitalization)
  Sender: FDA-Public Use
  Company Number: IT-ASGENIA-AS2023004997

PATIENT
  Age: 17 Year
  Sex: Female
  Weight: 56 kg

DRUGS (75)
  1. MORPHINE SULFATE [Suspect]
     Active Substance: MORPHINE SULFATE
     Indication: Ewing^s sarcoma
     Dosage: IMMEDIATE-RELEASE, AS NECESSARY
     Route: 048
  2. MORPHINE SULFATE [Suspect]
     Active Substance: MORPHINE SULFATE
     Indication: Palliative care
     Dosage: UNK, PRN
     Route: 048
  3. MORPHINE SULFATE [Suspect]
     Active Substance: MORPHINE SULFATE
     Indication: Pain
     Dosage: UNK(INFUSION) INTRAVENOUS BOLUSES
     Route: 042
  4. MORPHINE SULFATE [Suspect]
     Active Substance: MORPHINE SULFATE
     Indication: Palliative sedation
     Dosage: UNK(INFUSION)
     Route: 042
  5. MORPHINE SULFATE [Suspect]
     Active Substance: MORPHINE SULFATE
     Dosage: UNK UNK, PRN
     Route: 048
     Dates: start: 2022
  6. PREGABALIN [Suspect]
     Active Substance: PREGABALIN
     Indication: Ewing^s sarcoma
     Dosage: UNKNOWN, AS NEEDED
     Route: 065
     Dates: start: 2022
  7. PREGABALIN [Suspect]
     Active Substance: PREGABALIN
     Indication: Pain
     Dosage: UNK
     Route: 065
  8. PREGABALIN [Suspect]
     Active Substance: PREGABALIN
     Indication: Palliative care
     Dosage: UNK
     Route: 065
  9. PREGABALIN [Suspect]
     Active Substance: PREGABALIN
     Indication: Palliative care
     Dosage: UNK(INFUSION) INTRAVENOUS BOLUSES
     Route: 042
  10. PREGABALIN [Suspect]
     Active Substance: PREGABALIN
     Indication: Ewing^s sarcoma
  11. PREGABALIN [Suspect]
     Active Substance: PREGABALIN
     Indication: Product used for unknown indication
  12. OMEPRAZOLE [Suspect]
     Active Substance: DONEPEZIL HYDROCHLORIDE\OMEPRAZOLE\OMEPRAZOLE MAGNESIUM
     Indication: Ewing^s sarcoma
     Dosage: UNKNOWN, AS NEEDED
     Route: 065
     Dates: start: 2022
  13. OMEPRAZOLE [Suspect]
     Active Substance: DONEPEZIL HYDROCHLORIDE\OMEPRAZOLE\OMEPRAZOLE MAGNESIUM
     Indication: Palliative care
     Dosage: UNK
     Route: 065
  14. OMEPRAZOLE [Suspect]
     Active Substance: DONEPEZIL HYDROCHLORIDE\OMEPRAZOLE\OMEPRAZOLE MAGNESIUM
     Indication: Pain
     Dosage: UNK
     Route: 065
  15. OMEPRAZOLE [Suspect]
     Active Substance: DONEPEZIL HYDROCHLORIDE\OMEPRAZOLE\OMEPRAZOLE MAGNESIUM
     Indication: Palliative care
  16. OMEPRAZOLE [Suspect]
     Active Substance: DONEPEZIL HYDROCHLORIDE\OMEPRAZOLE\OMEPRAZOLE MAGNESIUM
     Indication: Ewing^s sarcoma
  17. COTRIMOXAZOLE [Suspect]
     Active Substance: SULFAMETHOXAZOLE\TRIMETHOPRIM
     Indication: Ewing^s sarcoma
     Dosage: UNK
     Route: 065
     Dates: start: 2022
  18. COTRIMOXAZOLE [Suspect]
     Active Substance: SULFAMETHOXAZOLE\TRIMETHOPRIM
     Indication: Pain
     Dosage: UNK
     Route: 065
  19. COTRIMOXAZOLE [Suspect]
     Active Substance: SULFAMETHOXAZOLE\TRIMETHOPRIM
     Indication: Palliative care
  20. COTRIMOXAZOLE [Suspect]
     Active Substance: SULFAMETHOXAZOLE\TRIMETHOPRIM
     Indication: Palliative care
  21. COTRIMOXAZOLE [Suspect]
     Active Substance: SULFAMETHOXAZOLE\TRIMETHOPRIM
     Indication: Ewing^s sarcoma
  22. DEXAMETHASONE [Suspect]
     Active Substance: DEXAMETHASONE
     Indication: Ewing^s sarcoma
     Dosage: UNKNOWN, AS NEEDED
     Route: 065
     Dates: start: 2022
  23. DEXAMETHASONE [Suspect]
     Active Substance: DEXAMETHASONE
     Indication: Palliative care
     Dosage: UNK
     Route: 065
  24. DEXAMETHASONE [Suspect]
     Active Substance: DEXAMETHASONE
     Indication: Pain
     Dosage: UNK
     Route: 065
  25. DEXAMETHASONE [Suspect]
     Active Substance: DEXAMETHASONE
     Indication: Palliative care
  26. DULOXETINE [Suspect]
     Active Substance: DULOXETINE
     Indication: Ewing^s sarcoma
     Dosage: UNK, PRN
     Route: 065
     Dates: start: 2022
  27. DULOXETINE [Suspect]
     Active Substance: DULOXETINE
     Indication: Pain
     Dosage: UNK
     Route: 065
  28. DULOXETINE [Suspect]
     Active Substance: DULOXETINE
     Indication: Palliative care
  29. DULOXETINE [Suspect]
     Active Substance: DULOXETINE
     Indication: Ewing^s sarcoma
  30. FENTANYL [Suspect]
     Active Substance: FENTANYL\FENTANYL CITRATE
     Indication: Ewing^s sarcoma
     Dosage: UNK, PRN
     Route: 062
     Dates: start: 2022
  31. FENTANYL [Suspect]
     Active Substance: FENTANYL\FENTANYL CITRATE
     Indication: Pain
     Dosage: UNK
     Route: 062
  32. FENTANYL [Suspect]
     Active Substance: FENTANYL\FENTANYL CITRATE
     Indication: Palliative care
     Dosage: UNK
     Route: 062
  33. FENTANYL [Suspect]
     Active Substance: FENTANYL\FENTANYL CITRATE
     Indication: Palliative care
  34. FENTANYL [Suspect]
     Active Substance: FENTANYL\FENTANYL CITRATE
     Indication: Ewing^s sarcoma
  35. FENTANYL [Suspect]
     Active Substance: FENTANYL\FENTANYL CITRATE
     Indication: Product used for unknown indication
  36. FENTANYL [Suspect]
     Active Substance: FENTANYL\FENTANYL CITRATE
     Indication: Ewing^s sarcoma
  37. ONDANSETRON [Suspect]
     Active Substance: ONDANSETRON
     Indication: Ewing^s sarcoma
     Dosage: UNKNOWN, AS NEEDED
     Route: 065
     Dates: start: 2022
  38. ONDANSETRON [Suspect]
     Active Substance: ONDANSETRON
     Indication: Palliative care
     Dosage: UNKNOWN, AS NEEDED
     Route: 065
  39. ONDANSETRON [Suspect]
     Active Substance: ONDANSETRON
     Indication: Ewing^s sarcoma
     Dosage: UNKNOWN
     Route: 065
  40. ONDANSETRON [Suspect]
     Active Substance: ONDANSETRON
     Indication: Pain
  41. ONDANSETRON [Suspect]
     Active Substance: ONDANSETRON
     Indication: Product used for unknown indication
  42. ACETAMINOPHEN [Suspect]
     Active Substance: ACETAMINOPHEN
     Indication: Ewing^s sarcoma
     Dosage: UNK, PRN
     Route: 065
  43. ACETAMINOPHEN [Suspect]
     Active Substance: ACETAMINOPHEN
     Indication: Palliative care
     Dosage: UNKNOWN
     Route: 065
     Dates: start: 2022
  44. ACETAMINOPHEN [Suspect]
     Active Substance: ACETAMINOPHEN
     Indication: Pain
  45. ACETAMINOPHEN [Suspect]
     Active Substance: ACETAMINOPHEN
     Indication: Product used for unknown indication
  46. DEXAMETHASONE SODIUM PHOSPHATE [Suspect]
     Active Substance: DEXAMETHASONE PHOSPHATE\DEXAMETHASONE SODIUM PHOSPHATE
     Indication: Palliative care
     Dosage: UNK, PRN
     Route: 065
  47. DEXAMETHASONE SODIUM PHOSPHATE [Suspect]
     Active Substance: DEXAMETHASONE PHOSPHATE\DEXAMETHASONE SODIUM PHOSPHATE
     Indication: Pain
  48. DEXAMETHASONE SODIUM PHOSPHATE [Suspect]
     Active Substance: DEXAMETHASONE PHOSPHATE\DEXAMETHASONE SODIUM PHOSPHATE
     Indication: Ewing^s sarcoma
  49. CLONIDINE [Suspect]
     Active Substance: CLONIDINE
     Indication: Palliative sedation
     Dosage: PROGRESSIVE DOSE ADJUSTMENTS IN RELATION TO POSSIBLE CONTROL OF REPORTED PAIN
     Route: 042
     Dates: start: 20220423
  50. CLONIDINE [Suspect]
     Active Substance: CLONIDINE
     Indication: Cancer pain
  51. MIDAZOLAM [Suspect]
     Active Substance: MIDAZOLAM
     Indication: Palliative sedation
     Dosage: UNK
     Route: 042
  52. MORPHINE HYDROCHLORIDE [Suspect]
     Active Substance: MORPHINE HYDROCHLORIDE
     Indication: Palliative sedation
     Dosage: UNK
     Route: 042
  53. MORPHINE HYDROCHLORIDE [Suspect]
     Active Substance: MORPHINE HYDROCHLORIDE
     Indication: Cancer pain
     Dosage: INFUSION
     Route: 042
  54. MORPHINE HYDROCHLORIDE [Suspect]
     Active Substance: MORPHINE HYDROCHLORIDE
     Indication: Ewing^s sarcoma
     Dosage: IMMEDIATE-RELEASE, AS NECESSARY
     Route: 048
  55. MORPHINE HYDROCHLORIDE [Suspect]
     Active Substance: MORPHINE HYDROCHLORIDE
     Indication: Palliative care
     Dosage: PROGRESSIVE DOSE ADJUSTMENTS IN RELATION TO POSSIBLE CONTROL OF REPORTED PAIN
     Route: 042
     Dates: start: 20220423
  56. MORPHINE HYDROCHLORIDE [Suspect]
     Active Substance: MORPHINE HYDROCHLORIDE
     Indication: Pain
     Dosage: UNK(INFUSION) INTRAVENOUS BOLUSES
     Route: 042
  57. MORPHINE HYDROCHLORIDE [Suspect]
     Active Substance: MORPHINE HYDROCHLORIDE
     Dosage: IMMEDIATE-RELEASE, AS NECESSARY
     Route: 048
  58. MORPHINE HYDROCHLORIDE [Suspect]
     Active Substance: MORPHINE HYDROCHLORIDE
     Dosage: UNK, PRN
     Route: 048
     Dates: start: 2022
  59. PROPOFOL [Suspect]
     Active Substance: PROPOFOL
     Indication: Product used for unknown indication
     Dosage: UNK
     Route: 065
  60. PROPOFOL [Suspect]
     Active Substance: PROPOFOL
     Dosage: UNK
     Route: 065
  61. ROPIVACAINE HYDROCHLORIDE [Suspect]
     Active Substance: ROPIVACAINE HYDROCHLORIDE
     Indication: Analgesic therapy
     Dosage: 24 MILLIGRAM, Q1H (INFUSION)
     Route: 065
  62. ROPIVACAINE HYDROCHLORIDE [Suspect]
     Active Substance: ROPIVACAINE HYDROCHLORIDE
     Dosage: INFUSION
     Route: 065
  63. ONDANSETRON HYDROCHLORIDE [Suspect]
     Active Substance: ONDANSETRON HYDROCHLORIDE
     Indication: Ewing^s sarcoma
     Dosage: UNK, PRN
     Route: 065
     Dates: start: 2022
  64. ONDANSETRON HYDROCHLORIDE [Suspect]
     Active Substance: ONDANSETRON HYDROCHLORIDE
     Indication: Palliative care
     Dosage: UNK
     Route: 065
  65. ONDANSETRON HYDROCHLORIDE [Suspect]
     Active Substance: ONDANSETRON HYDROCHLORIDE
     Indication: Ewing^s sarcoma
  66. ONDANSETRON HYDROCHLORIDE [Suspect]
     Active Substance: ONDANSETRON HYDROCHLORIDE
     Indication: Pain
  67. CLOZAPINE [Suspect]
     Active Substance: CLOZAPINE
     Indication: Psychotic disorder
     Dosage: 100 MG
     Route: 065
  68. CLOZAPINE [Suspect]
     Active Substance: CLOZAPINE
     Indication: Psychomotor hyperactivity
     Dosage: 12.5 MG X 2 /DIE Q12H
     Route: 048
     Dates: start: 20220903, end: 20220913
  69. CLOZAPINE [Suspect]
     Active Substance: CLOZAPINE
     Dosage: 275 MILLIGRAM, Q12H (100 MG)
     Route: 065
  70. OMEPRAZOLE SODIUM [Suspect]
     Active Substance: OMEPRAZOLE SODIUM
     Indication: Palliative care
     Dosage: UNK, PRN
     Route: 065
     Dates: start: 2022
  71. OMEPRAZOLE SODIUM [Suspect]
     Active Substance: OMEPRAZOLE SODIUM
     Indication: Ewing^s sarcoma
  72. MORPHINE HYDROCHLORIDE [Suspect]
     Active Substance: MORPHINE HYDROCHLORIDE
     Indication: Palliative sedation
     Dosage: UNK (INFUSION)
     Route: 042
  73. MORPHINE HYDROCHLORIDE [Suspect]
     Active Substance: MORPHINE HYDROCHLORIDE
     Indication: Ewing^s sarcoma
     Dosage: IMMEDIATE-RELEASE, AS NECESSARY
     Route: 048
     Dates: start: 2022
  74. MORPHINE HYDROCHLORIDE [Suspect]
     Active Substance: MORPHINE HYDROCHLORIDE
     Indication: Pain
     Dosage: UNK(INFUSION) INTRAVENOUS BOLUSES
     Route: 042
  75. MORPHINE HYDROCHLORIDE [Suspect]
     Active Substance: MORPHINE HYDROCHLORIDE
     Dosage: UNKIMMEDIATE-RELEASE, AS NECESSARY
     Route: 048
     Dates: start: 2022

REACTIONS (24)
  - Death [Fatal]
  - Drug ineffective [Fatal]
  - Pain [Fatal]
  - Pain [Fatal]
  - Anxiety [Unknown]
  - Psychomotor hyperactivity [Unknown]
  - Anxiety [Unknown]
  - Pyrexia [Unknown]
  - Weight decreased [Unknown]
  - Decreased appetite [Unknown]
  - Feeling of despair [Unknown]
  - Urine output decreased [Unknown]
  - Dyspnoea [Unknown]
  - Haematuria [Unknown]
  - Product use in unapproved indication [Unknown]
  - Asthenia [Unknown]
  - Vomiting [Unknown]
  - Nausea [Recovering/Resolving]
  - Off label use [Recovered/Resolved]
  - Movement disorder [Recovering/Resolving]
  - Oliguria [Unknown]
  - Dizziness [Recovering/Resolving]
  - Dizziness [Recovering/Resolving]
  - Nausea [Recovering/Resolving]

NARRATIVE: CASE EVENT DATE: 20220101
